FAERS Safety Report 11217507 (Version 1)
Quarter: 2015Q2

REPORT INFORMATION
  Report Type: Spontaneous
  Country: US (occurrence: None)
  Receive Date: 20150624
  Receipt Date: 20150624
  Transmission Date: 20150821
  Serious: Yes (Death)
  Sender: FDA-Public Use
  Company Number: None

PATIENT
  Age: 73 Year
  Sex: Male

DRUGS (1)
  1. TEMODAR [Suspect]
     Active Substance: TEMOZOLOMIDE
     Indication: BRAIN NEOPLASM MALIGNANT
     Dosage: 3 CAPSULES
     Route: 048
     Dates: start: 201211, end: 201311

REACTIONS (2)
  - Tremor [None]
  - Feeling cold [None]

NARRATIVE: CASE EVENT DATE: 20140510
